FAERS Safety Report 6047818-X (Version None)
Quarter: 2009Q1

REPORT INFORMATION
  Report Type: 
  Country: None (occurrence: None)
  Receive Date: 20090123
  Receipt Date: 20090114
  Transmission Date: 20090719
  Serious: Yes (Death, Other)
  Sender: FDA-Public Use
  Company Number: CN-PFIZER INC-2009156452

PATIENT

DRUGS (7)
  1. LIPITOR [Suspect]
     Indication: HYPERLIPIDAEMIA
     Dosage: 40 MG, 1X/DAY
     Route: 048
     Dates: start: 20090108, end: 20090111
  2. LIPITOR [Suspect]
     Indication: ACUTE CORONARY SYNDROME
  3. ACETYLSALICYLIC ACID [Concomitant]
     Dosage: UNK
  4. ORGANIC NITRATES [Concomitant]
     Dosage: UNK
  5. HEPARIN-FRACTION [Concomitant]
     Dosage: UNK
  6. CEPHALOSPORINS AND RELATED SUBSTANCES [Concomitant]
     Dosage: UNK
  7. AZITHROMYCIN [Concomitant]
     Dosage: UNK

REACTIONS (3)
  - ACUTE PULMONARY OEDEMA [None]
  - RENAL FAILURE [None]
  - RHABDOMYOLYSIS [None]
